FAERS Safety Report 10181360 (Version 1)
Quarter: 2014Q2

REPORT INFORMATION
  Report Type: Spontaneous
  Country: US (occurrence: US)
  Receive Date: 20140519
  Receipt Date: 20140519
  Transmission Date: 20141212
  Serious: No
  Sender: FDA-Public Use
  Company Number: US-AMGEN INC.-USASP2014033386

PATIENT
  Age: 86 Year
  Sex: Female

DRUGS (6)
  1. PROLIA [Suspect]
     Indication: OSTEOPOROSIS POSTMENOPAUSAL
     Dosage: UNK
     Route: 065
     Dates: start: 201311
  2. FISH OIL [Concomitant]
  3. VITAMIN D                          /00107901/ [Concomitant]
  4. CALCIUM [Concomitant]
  5. MULTIVITAMIN                       /00097801/ [Concomitant]
  6. SYNTHROID [Concomitant]

REACTIONS (2)
  - Urinary tract infection [Unknown]
  - Respiratory disorder [Unknown]
